FAERS Safety Report 12474299 (Version 1)
Quarter: 2016Q2

REPORT INFORMATION
  Report Type: Spontaneous
  Country: US (occurrence: None)
  Receive Date: 20160616
  Receipt Date: 20160616
  Transmission Date: 20160815
  Serious: Yes (Death, Hospitalization)
  Sender: FDA-Public Use
  Company Number: None

PATIENT
  Age: 4 Year
  Sex: Male
  Weight: 13.9 kg

DRUGS (4)
  1. VINCRISTINE SULFATE. [Suspect]
     Active Substance: VINCRISTINE SULFATE
     Dates: end: 20160610
  2. ONCASPAR [Suspect]
     Active Substance: PEGASPARGASE
     Dates: end: 20160530
  3. DEXAMETHASONE. [Suspect]
     Active Substance: DEXAMETHASONE
     Dates: end: 20160610
  4. CYTARABINE. [Suspect]
     Active Substance: CYTARABINE
     Dates: end: 20160527

REACTIONS (5)
  - Pyrexia [None]
  - Unresponsive to stimuli [None]
  - Haemorrhage intracranial [None]
  - Cardio-respiratory arrest [None]
  - Brain midline shift [None]

NARRATIVE: CASE EVENT DATE: 20160611
